FAERS Safety Report 19233739 (Version 1)
Quarter: 2021Q2

REPORT INFORMATION
  Report Type: Spontaneous
  Country: DE (occurrence: DE)
  Receive Date: 20210507
  Receipt Date: 20210507
  Transmission Date: 20210717
  Serious: Yes (Hospitalization, Other)
  Sender: FDA-Public Use
  Company Number: DE-EMD SERONO-E2B_90076080

PATIENT
  Age: 27 Year
  Sex: Female

DRUGS (7)
  1. LUVERIS [Suspect]
     Active Substance: LUTROPIN ALFA
     Indication: ASSISTED REPRODUCTIVE TECHNOLOGY
     Dosage: 75 MICROE, 10 TO 12 CYCLE DAY, ALWAYS 2X EACH
  2. ORGALUTRAN [Suspect]
     Active Substance: GANIRELIX ACETATE
     Indication: ASSISTED REPRODUCTIVE TECHNOLOGY
     Dosage: FORM STRENGTH: 0.25 MG/0.5 ML?6TH CYCLE DAY, 7TH TO 9TH CYCLE DAY HALF ORGALUTRAN 0.25 MG/0.5 ML
  3. DECAPEPTYL (ACETATE) [Suspect]
     Active Substance: TRIPTORELIN ACETATE
     Indication: ASSISTED REPRODUCTIVE TECHNOLOGY
     Dosage: 0.1 MG/1 ML?13TH CYCLE DAY 2X
  4. BEMFOLA [Suspect]
     Active Substance: FOLLITROPIN ALFA
     Indication: ASSISTED REPRODUCTIVE TECHNOLOGY
     Dosage: FORM STRENGTH: 175 IE
  5. EXEMESTANE. [Concomitant]
     Active Substance: EXEMESTANE
     Indication: ASSISTED REPRODUCTIVE TECHNOLOGY
     Dosage: 0?0?3
  6. DOSTINEX [Concomitant]
     Active Substance: CABERGOLINE
     Indication: ASSISTED REPRODUCTIVE TECHNOLOGY
     Dosage: 8 PCS 0?0?1 FOR 8 DAYS
  7. BEMFOLA [Suspect]
     Active Substance: FOLLITROPIN ALFA
     Dosage: FORM STRENGTH: 150 I.E./0.25 ML?2ND CYCLE DAY TO 12TH CYCLE DAY

REACTIONS (4)
  - Movement disorder [Unknown]
  - Ovarian hyperstimulation syndrome [Unknown]
  - Intra-abdominal fluid collection [Unknown]
  - Abdominal pain lower [Unknown]

NARRATIVE: CASE EVENT DATE: 20200224
